FAERS Safety Report 14654540 (Version 2)
Quarter: 2018Q2

REPORT INFORMATION
  Report Type: Report from Study
  Country: US (occurrence: US)
  Receive Date: 20180319
  Receipt Date: 20180426
  Transmission Date: 20180711
  Serious: Yes (Hospitalization)
  Sender: FDA-Public Use
  Company Number: US-GILEAD-2018-0326430

PATIENT
  Age: 48 Year
  Sex: Male

DRUGS (12)
  1. REVATIO [Concomitant]
     Active Substance: SILDENAFIL CITRATE
  2. COZAAR [Concomitant]
     Active Substance: LOSARTAN POTASSIUM
  3. NORCO [Concomitant]
     Active Substance: ACETAMINOPHEN\HYDROCODONE BITARTRATE
  4. ZYRTEC [Concomitant]
     Active Substance: CETIRIZINE HYDROCHLORIDE
  5. AMBRISENTAN [Suspect]
     Active Substance: AMBRISENTAN
     Dosage: 10 MG, QD
     Route: 048
     Dates: start: 201709, end: 201709
  6. CONDYLOX [Concomitant]
     Active Substance: PODOFILOX
  7. OXYGEN. [Concomitant]
     Active Substance: OXYGEN
  8. AMBRISENTAN [Suspect]
     Active Substance: AMBRISENTAN
     Indication: PULMONARY ARTERIAL HYPERTENSION
     Dosage: 5 MG, QD
     Route: 048
     Dates: start: 201708
  9. COREG [Concomitant]
     Active Substance: CARVEDILOL
  10. SPIRONOLACTONE. [Concomitant]
     Active Substance: SPIRONOLACTONE
  11. AMBRISENTAN [Suspect]
     Active Substance: AMBRISENTAN
     Dosage: 5 MG, QD
     Route: 048
     Dates: start: 201709, end: 20180418
  12. K TAB [Concomitant]

REACTIONS (5)
  - Oedema peripheral [Unknown]
  - Dyspnoea [Unknown]
  - Peripheral swelling [Unknown]
  - Stasis dermatitis [Unknown]
  - Skin discolouration [Unknown]
